FAERS Safety Report 11918686 (Version 1)
Quarter: 2016Q1

REPORT INFORMATION
  Report Type: Spontaneous
  Country: US (occurrence: US)
  Receive Date: 20160115
  Receipt Date: 20160115
  Transmission Date: 20160526
  Serious: No
  Sender: FDA-Public Use
  Company Number: US-JNJFOC-20151211043

PATIENT
  Sex: Female

DRUGS (1)
  1. REMICADE [Suspect]
     Active Substance: INFLIXIMAB
     Indication: RHEUMATOID ARTHRITIS
     Route: 042

REACTIONS (4)
  - Hypersensitivity [Recovered/Resolved]
  - Drug effect decreased [Recovered/Resolved]
  - Infusion related reaction [Recovered/Resolved]
  - Infusion site haemorrhage [Recovered/Resolved]
